FAERS Safety Report 4273342-0 (Version None)
Quarter: 2004Q1

REPORT INFORMATION
  Report Type: 
  Country: None (occurrence: None)
  Receive Date: 20040115
  Receipt Date: 20040115
  Transmission Date: 20041129
  Serious: No
  Sender: FDA-Public Use
  Company Number: None

PATIENT
  Age: 74 Year
  Sex: Male

DRUGS (1)
  1. OXYBUTYNIN [Suspect]
     Indication: URINARY INCONTINENCE
     Dosage: 5 MG PO TID
     Route: 048

REACTIONS (2)
  - DYSPEPSIA [None]
  - HEADACHE [None]
